FAERS Safety Report 4802564-2 (Version None)
Quarter: 2005Q4

REPORT INFORMATION
  Report Type: 
  Country: None (occurrence: None)
  Receive Date: 20051014
  Receipt Date: 20050119
  Transmission Date: 20060501
  Serious: Yes (Other)
  Sender: FDA-Public Use
  Company Number: 2005015752

PATIENT
  Sex: Male

DRUGS (5)
  1. NEURONTIN [Suspect]
     Indication: NEUROPATHY
     Dosage: 1800 MG (600 MG, 3 IN 1 D), ORAL
     Route: 048
  2. IBUPROFEN [Concomitant]
  3. PROPACET 100 [Concomitant]
  4. INSULIN [Concomitant]
  5. ADVICOR [Concomitant]

REACTIONS (4)
  - BLOOD TRIGLYCERIDES INCREASED [None]
  - NEUROPATHY [None]
  - WEIGHT DECREASED [None]
  - WEIGHT INCREASED [None]
